FAERS Safety Report 8368435-2 (Version None)
Quarter: 2012Q2

REPORT INFORMATION
  Report Type: 
  Country: None (occurrence: None)
  Receive Date: 20120517
  Receipt Date: 20120510
  Transmission Date: 20120825
  Serious: Yes (Other)
  Sender: FDA-Public Use
  Company Number: DE-AMGEN-DEUSP2012029965

PATIENT
  Sex: Female

DRUGS (4)
  1. ENBREL [Suspect]
     Indication: RHEUMATOID ARTHRITIS
     Dosage: 50 MG, WEEKLY
     Dates: start: 20040306
  2. IBUPROFEN [Concomitant]
     Dosage: UNK
  3. PANTOPRAZOLE [Concomitant]
     Dosage: UNK
  4. CORTISONE ACETATE [Concomitant]
     Dosage: UNK

REACTIONS (2)
  - RHEUMATOID ARTHRITIS [None]
  - INFLAMMATORY MARKER INCREASED [None]
